FAERS Safety Report 15271035 (Version 2)
Quarter: 2018Q3

REPORT INFORMATION
  Report Type: Report from Study
  Country: US (occurrence: US)
  Receive Date: 20180813
  Receipt Date: 20180814
  Transmission Date: 20181010
  Serious: Yes (Other)
  Sender: FDA-Public Use
  Company Number: US-ASTRAZENECA-2018SE42654

PATIENT
  Age: 28971 Day
  Sex: Female

DRUGS (1)
  1. IMFINZI [Suspect]
     Active Substance: DURVALUMAB
     Indication: BLADDER CANCER
     Route: 042
     Dates: start: 20180212

REACTIONS (29)
  - Neck mass [Not Recovered/Not Resolved]
  - Peripheral swelling [Unknown]
  - Dizziness [Unknown]
  - Neoplasm malignant [Unknown]
  - Pain in jaw [Unknown]
  - Pain [Unknown]
  - Pain [Not Recovered/Not Resolved]
  - Metastases to muscle [Unknown]
  - Pyrexia [Unknown]
  - Neck pain [Unknown]
  - Urinary tract stoma complication [Unknown]
  - Vision blurred [Not Recovered/Not Resolved]
  - Fall [Unknown]
  - Adverse event [Unknown]
  - Musculoskeletal stiffness [Unknown]
  - Myalgia [Unknown]
  - Wound secretion [Unknown]
  - Fatigue [Unknown]
  - Chills [Unknown]
  - Impaired healing [Unknown]
  - Urinary retention [Unknown]
  - Metastases to central nervous system [Unknown]
  - Diarrhoea [Unknown]
  - Muscular weakness [Unknown]
  - Mandibular mass [Unknown]
  - Abdominal discomfort [Unknown]
  - Drug ineffective [Unknown]
  - Muscle spasms [Unknown]
  - Nausea [Unknown]

NARRATIVE: CASE EVENT DATE: 20180329
